FAERS Safety Report 8163291-X (Version None)
Quarter: 2012Q1

REPORT INFORMATION
  Report Type: 
  Country: None (occurrence: None)
  Receive Date: 20120224
  Receipt Date: 20110322
  Transmission Date: 20120608
  Serious: No
  Sender: FDA-Public Use
  Company Number: US-PFIZER INC-K201100335

PATIENT
  Age: 81 Year
  Sex: Male

DRUGS (3)
  1. FLECTOR [Suspect]
     Indication: PAIN IN EXTREMITY
     Dosage: 1/2 PATCH ON LEG, 1/2 PATCH ON BACK FOR A TOTAL OF 12 HOURS
     Route: 061
     Dates: start: 20110319, end: 20110320
  2. FLECTOR [Suspect]
     Dosage: UNK PATCH, UNK
     Route: 061
  3. FLECTOR [Suspect]
     Dosage: 1 PATCH ON LEG FOR A TOTAL OF 12 HOURS
     Route: 061
     Dates: start: 20110321, end: 20110321

REACTIONS (3)
  - DYSURIA [None]
  - URINARY HESITATION [None]
  - URINE FLOW DECREASED [None]
